FAERS Safety Report 25608396 (Version 1)
Quarter: 2025Q3

REPORT INFORMATION
  Report Type: Spontaneous
  Country: IL (occurrence: IL)
  Receive Date: 20250726
  Receipt Date: 20250726
  Transmission Date: 20251020
  Serious: Yes (Death, Life-Threatening, Other)
  Sender: AMGEN
  Company Number: IL-AMGEN-ISRSP2025143817

PATIENT
  Age: 53 Year
  Sex: Female

DRUGS (5)
  1. BEVACIZUMAB [Suspect]
     Active Substance: BEVACIZUMAB
     Indication: Adenocarcinoma of colon
     Route: 065
  2. BEVACIZUMAB [Suspect]
     Active Substance: BEVACIZUMAB
     Route: 065
  3. CAPECITABINE [Concomitant]
     Active Substance: CAPECITABINE
  4. OXALIPLATIN [Concomitant]
     Active Substance: OXALIPLATIN
  5. FLUOROURACIL\LEUCOVORIN [Concomitant]
     Active Substance: FLUOROURACIL\LEUCOVORIN

REACTIONS (10)
  - Colon cancer metastatic [Fatal]
  - Cardio-respiratory arrest [Fatal]
  - Multiple organ dysfunction syndrome [Fatal]
  - Depressed level of consciousness [Unknown]
  - Sepsis [Unknown]
  - Acute kidney injury [Unknown]
  - Neuropathy peripheral [Unknown]
  - Pulmonary hypertension [Unknown]
  - Pulmonary embolism [Unknown]
  - Left ventricular dysfunction [Unknown]
